FAERS Safety Report 25749715 (Version 1)
Quarter: 2025Q3

REPORT INFORMATION
  Report Type: Spontaneous
  Country: US (occurrence: US)
  Receive Date: 20250902
  Receipt Date: 20250902
  Transmission Date: 20251020
  Serious: Yes (Hospitalization, Other)
  Sender: NOVITIUM PHARMA
  Company Number: US-NOVITIUMPHARMA-2025USNVP02202

PATIENT
  Age: 62 Year
  Sex: Male

DRUGS (6)
  1. PREDNISONE [Suspect]
     Active Substance: PREDNISONE
     Indication: Uveitis
  2. PREDNISONE [Suspect]
     Active Substance: PREDNISONE
     Indication: Ocular sarcoidosis
  3. PREDNISONE [Suspect]
     Active Substance: PREDNISONE
     Indication: Uveitis
  4. PREDNISONE [Suspect]
     Active Substance: PREDNISONE
     Indication: Ocular sarcoidosis
  5. MYCOPHENOLATE MOFETIL [Concomitant]
     Active Substance: MYCOPHENOLATE MOFETIL
  6. MYCOPHENOLATE MOFETIL [Concomitant]
     Active Substance: MYCOPHENOLATE MOFETIL

REACTIONS (1)
  - Squamous cell carcinoma of skin [Recovering/Resolving]
